FAERS Safety Report 11707892 (Version 1)
Quarter: 2015Q4

REPORT INFORMATION
  Report Type: Spontaneous
  Country: US (occurrence: US)
  Receive Date: 20151104
  Receipt Date: 20151104
  Transmission Date: 20160304
  Serious: No
  Sender: FDA-Public Use
  Company Number: US-ELI_LILLY_AND_COMPANY-US201108003384

PATIENT
  Sex: Female

DRUGS (1)
  1. FORTEO [Suspect]
     Active Substance: TERIPARATIDE
     Indication: OSTEOPOROSIS
     Dosage: 20 UG, QD

REACTIONS (5)
  - Fatigue [Recovering/Resolving]
  - Back pain [Recovering/Resolving]
  - Oesophageal spasm [Unknown]
  - Musculoskeletal pain [Recovering/Resolving]
  - Intentional product misuse [Unknown]
